FAERS Safety Report 5699434-7 (Version None)
Quarter: 2008Q2

REPORT INFORMATION
  Report Type: 
  Country: None (occurrence: None)
  Receive Date: 20080408
  Receipt Date: 20080408
  Transmission Date: 20081010
  Serious: Yes (Hospitalization)
  Sender: FDA-Public Use
  Company Number: None

PATIENT
  Age: 65 Year
  Sex: Male
  Weight: 83.91 kg

DRUGS (2)
  1. IMMUNE GLOBULIN (HUMAN) [Suspect]
     Indication: CHRONIC INFLAMMATORY DEMYELINATING POLYRADICULONEUROPATHY
     Dosage: 5GM OTHER IV
     Route: 042
     Dates: start: 20070508, end: 20080311
  2. IMMUNE GLOBULIN (HUMAN) [Suspect]
     Dosage: 80GM OTHER IV
     Route: 042
     Dates: start: 20070508, end: 20080311

REACTIONS (6)
  - HYPOTENSION [None]
  - INFUSION RELATED REACTION [None]
  - PRURITUS [None]
  - SWOLLEN TONGUE [None]
  - TONGUE DISORDER [None]
  - URTICARIA [None]
